FAERS Safety Report 10556491 (Version 1)
Quarter: 2014Q4

REPORT INFORMATION
  Report Type: Report from Study
  Country: US (occurrence: US)
  Receive Date: 20141031
  Receipt Date: 20141031
  Transmission Date: 20150529
  Serious: Yes (Other)
  Sender: FDA-Public Use
  Company Number: US-ROCHE-1449258

PATIENT
  Sex: Female
  Weight: 74.46 kg

DRUGS (2)
  1. VALIUM [Suspect]
     Active Substance: DIAZEPAM
     Indication: ANXIETY
     Dosage: PRN
     Route: 048
  2. SEROQUEL [Concomitant]
     Active Substance: QUETIAPINE FUMARATE
     Dosage: 7.5 QHS
     Route: 065

REACTIONS (8)
  - Lymphadenopathy [Unknown]
  - Tenderness [Unknown]
  - Metastatic neoplasm [Unknown]
  - Headache [Unknown]
  - Dyspnoea exertional [Unknown]
  - Hypoaesthesia [Unknown]
  - Local swelling [Unknown]
  - Malignant melanoma [Unknown]
